FAERS Safety Report 11605560 (Version 1)
Quarter: 2015Q4

REPORT INFORMATION
  Report Type: Spontaneous
  Country: US (occurrence: US)
  Receive Date: 20151007
  Receipt Date: 20151007
  Transmission Date: 20160304
  Serious: Yes (Other)
  Sender: FDA-Public Use
  Company Number: US-SA-2015SA152459

PATIENT
  Age: 73 Year
  Sex: Male

DRUGS (1)
  1. MULTAQ [Suspect]
     Active Substance: DRONEDARONE
     Route: 065

REACTIONS (5)
  - Lymphadenopathy mediastinal [Unknown]
  - Interstitial lung disease [Unknown]
  - Diverticulitis [Unknown]
  - Lung infiltration [Unknown]
  - Pleural effusion [Unknown]
